FAERS Safety Report 6689369-5 (Version None)
Quarter: 2010Q2

REPORT INFORMATION
  Report Type: 
  Country: None (occurrence: None)
  Receive Date: 20100419
  Receipt Date: 20100419
  Transmission Date: 20101027
  Serious: Yes (Life-Threatening, Hospitalization)
  Sender: FDA-Public Use
  Company Number: None

PATIENT
  Sex: Female
  Weight: 99.3 kg

DRUGS (1)
  1. COLON CLEANSING COMPLEX -PART 1- CVS [Suspect]
     Dosage: 2 TABLETS PO
     Route: 048
     Dates: start: 20100408, end: 20100408

REACTIONS (3)
  - ANGIOEDEMA [None]
  - OBSTRUCTIVE AIRWAYS DISORDER [None]
  - PNEUMONIA ASPIRATION [None]
